FAERS Safety Report 14556351 (Version 5)
Quarter: 2018Q2

REPORT INFORMATION
  Report Type: Report from Study
  Country: US (occurrence: US)
  Receive Date: 20180221
  Receipt Date: 20180406
  Transmission Date: 20180711
  Serious: Yes (Hospitalization, Other)
  Sender: FDA-Public Use
  Company Number: US-KITE, A GILEAD COMPANY-2042377

PATIENT
  Age: 63 Year
  Sex: Male
  Weight: 82.1 kg

DRUGS (46)
  1. CYTOXAN [Suspect]
     Active Substance: CYCLOPHOSPHAMIDE
     Route: 042
     Dates: start: 20180119, end: 20180121
  2. ZYLOPRIM [Concomitant]
     Active Substance: ALLOPURINOL
     Dates: start: 20180118
  3. ROXICODONE [Concomitant]
     Active Substance: OXYCODONE HYDROCHLORIDE
     Dates: start: 20180118
  4. VANCOMYCIN [Concomitant]
     Active Substance: VANCOMYCIN
     Dates: start: 20180125, end: 20180129
  5. AMIKACIN. [Concomitant]
     Active Substance: AMIKACIN
     Dates: start: 20180129
  6. ALBUMIN (HUMAN) [Concomitant]
     Active Substance: ALBUMIN HUMAN
     Dates: start: 20180124
  7. POLYETHYLENE GLYCOL [Concomitant]
     Active Substance: POLYETHYLENE GLYCOLS
     Dates: start: 20180123, end: 20180124
  8. ASPIRIN. [Concomitant]
     Active Substance: ASPIRIN
  9. YESCARTA [Suspect]
     Active Substance: AXICABTAGENE CILOLEUCEL
     Indication: MANTLE CELL LYMPHOMA
     Route: 042
     Dates: start: 20180124, end: 20180124
  10. LEVAQUIN [Concomitant]
     Active Substance: LEVOFLOXACIN
     Dates: start: 20180124, end: 20180125
  11. ALTEPLASE. [Concomitant]
     Active Substance: ALTEPLASE
     Dates: start: 20180124, end: 20180124
  12. POTASSIUM CHLORIDE. [Concomitant]
     Active Substance: POTASSIUM CHLORIDE
     Dates: start: 20180124, end: 20180124
  13. LEVETIRACETAM. [Concomitant]
     Active Substance: LEVETIRACETAM
     Dates: start: 20180124
  14. DIPHENHYDRAMINE. [Concomitant]
     Active Substance: DIPHENHYDRAMINE
     Dates: start: 20180124, end: 20180124
  15. PROTONIX [Concomitant]
     Active Substance: PANTOPRAZOLE SODIUM
     Route: 048
  16. POTASSIUM CHLORIDE. [Concomitant]
     Active Substance: POTASSIUM CHLORIDE
  17. VALACYCLOVIR [Concomitant]
     Active Substance: VALACYCLOVIR HYDROCHLORIDE
     Dates: start: 20171003
  18. ROXICODONE [Concomitant]
     Active Substance: OXYCODONE HYDROCHLORIDE
     Dates: start: 20180118
  19. VANCOMYCIN [Concomitant]
     Active Substance: VANCOMYCIN
     Dates: start: 20180125, end: 20180130
  20. ZOFRAN [Concomitant]
     Active Substance: ONDANSETRON HYDROCHLORIDE
     Dates: start: 20180123
  21. VALTREX [Concomitant]
     Active Substance: VALACYCLOVIR HYDROCHLORIDE
     Route: 048
  22. LORATADINE W/ PSEUDOEPHEDRINE [Concomitant]
     Dates: start: 20180124, end: 20180124
  23. IBUPROFEN. [Concomitant]
     Active Substance: IBUPROFEN
     Dates: start: 20180124
  24. AMIODARONE [Concomitant]
     Active Substance: AMIODARONE
  25. ASCORBIC ACID. [Concomitant]
     Active Substance: ASCORBIC ACID
  26. CHOLECALCIFEROL [Concomitant]
     Active Substance: CHOLECALCIFEROL
  27. LEVOTHROID [Concomitant]
     Active Substance: LEVOTHYROXINE SODIUM
  28. OXYCONTIN [Concomitant]
     Active Substance: OXYCODONE HYDROCHLORIDE
     Dates: start: 20180118
  29. CEFEPIME [Concomitant]
     Active Substance: CEFEPIME HYDROCHLORIDE
  30. ALTEPLASE. [Concomitant]
     Active Substance: ALTEPLASE
     Dates: start: 20180126, end: 20180126
  31. SILTUXIMAB [Concomitant]
     Active Substance: SILTUXIMAB
     Dates: start: 20180124, end: 20180130
  32. MEPERIDINE [Concomitant]
     Active Substance: MEPERIDINE
     Dates: start: 20180124
  33. PREDNISONE. [Concomitant]
     Active Substance: PREDNISONE
  34. SYNTHROID [Concomitant]
     Active Substance: LEVOTHYROXINE SODIUM
     Route: 048
  35. ZOFRAN [Concomitant]
     Active Substance: ONDANSETRON HYDROCHLORIDE
     Dates: start: 20180118
  36. CEFEPIME [Concomitant]
     Active Substance: CEFEPIME HYDROCHLORIDE
     Dates: start: 20180125, end: 20180130
  37. SODIUM HYPOCHLORITE [Concomitant]
     Active Substance: SODIUM HYPOCHLORITE
     Dates: start: 20180127, end: 20180203
  38. SODIUM CHLORIDE. [Concomitant]
     Active Substance: SODIUM CHLORIDE
  39. FLUDARA [Suspect]
     Active Substance: FLUDARABINE PHOSPHATE
     Route: 042
     Dates: start: 20180119, end: 20180121
  40. MESNA. [Suspect]
     Active Substance: MESNA
     Route: 042
     Dates: start: 20180119, end: 20180122
  41. VITAMIN B COMPLEX [Concomitant]
     Active Substance: CYANOCOBALAMIN\DEXPANTHENOL\NIACINAMIDE\PYRIDOXINE HYDROCHLORIDE\RIBOFLAVIN 5^-PHOSPHATE SODIUM\THIAMINE HYDROCHLORIDE\VITAMIN B COMPLEX
  42. LIDOCAINE. [Concomitant]
     Active Substance: LIDOCAINE
     Dates: start: 20180125
  43. ACETAMINOPHEN. [Concomitant]
     Active Substance: ACETAMINOPHEN
     Dates: start: 20180124
  44. SENOKOT-S [Concomitant]
     Active Substance: DOCUSATE SODIUM\SENNOSIDES
     Dates: start: 20180123
  45. SODIUM CHLORIDE. [Concomitant]
     Active Substance: SODIUM CHLORIDE
  46. SODIUM CHLORIDE. [Concomitant]
     Active Substance: SODIUM CHLORIDE

REACTIONS (5)
  - Cytokine release syndrome [Recovered/Resolved]
  - Ventricular arrhythmia [Recovered/Resolved]
  - Febrile neutropenia [Recovered/Resolved]
  - Atrial fibrillation [Recovered/Resolved]
  - Wound infection [Recovered/Resolved]

NARRATIVE: CASE EVENT DATE: 20180129
